FAERS Safety Report 20296770 (Version 1)
Quarter: 2022Q1

REPORT INFORMATION
  Report Type: Spontaneous
  Country: US (occurrence: None)
  Receive Date: 20220105
  Receipt Date: 20220105
  Transmission Date: 20220423
  Serious: No
  Sender: FDA-Public Use
  Company Number: US-ROCHE-2875027

PATIENT
  Sex: Male

DRUGS (2)
  1. HEMLIBRA [Suspect]
     Active Substance: EMICIZUMAB-KXWH
     Indication: Factor VIII deficiency
     Dosage: 105 MG/0.7 ML?WEEKLY FOR 4 WEEKS AND THEN EVERY TWO WEEKS THEREAFTER
     Route: 058
     Dates: start: 202106
  2. HEMLIBRA [Suspect]
     Active Substance: EMICIZUMAB-KXWH
     Dosage: 60 MG/0.4 ML ?WEEKLY FOR 4 WEEKS AND THEN EVERY TWO WEEKS THEREAFTER
     Route: 058
     Dates: start: 202106

REACTIONS (1)
  - Arthralgia [Unknown]
